FAERS Safety Report 11157919 (Version 2)
Quarter: 2015Q2

REPORT INFORMATION
  Report Type: Spontaneous
  Country: ES (occurrence: ES)
  Receive Date: 20150603
  Receipt Date: 20150609
  Transmission Date: 20150821
  Serious: Yes (Other)
  Sender: FDA-Public Use
  Company Number: ES-AMGEN-ESPSP2015036628

PATIENT
  Age: 69 Year
  Sex: Female

DRUGS (9)
  1. PROLIA [Suspect]
     Active Substance: DENOSUMAB
     Indication: OSTEOPOROSIS
     Dosage: 60 MG, Q6MO
     Route: 058
     Dates: start: 20120912
  2. OMEPRAZOLE. [Concomitant]
     Active Substance: OMEPRAZOLE
     Dosage: 20 MG, QD
     Route: 048
  3. HIDROXIL [Concomitant]
  4. YURELAX [Concomitant]
     Active Substance: CYCLOBENZAPRINE HYDROCHLORIDE
     Dosage: 10 MG, UNK
  5. PARACETAMOL [Concomitant]
     Active Substance: ACETAMINOPHEN
     Indication: PAIN
     Dosage: 1 G, UNK
  6. NOLOTIL                            /00473101/ [Concomitant]
     Active Substance: METAMIZOLE
  7. HIDROFEROL [Concomitant]
     Active Substance: CALCIFEDIOL
     Dosage: 16000 IU, QMO
  8. IBUPROFEN. [Concomitant]
     Active Substance: IBUPROFEN
     Dosage: 600 MG, UNK
  9. PARACETAMOL+CODEINE [Concomitant]
     Active Substance: ACETAMINOPHEN\CODEINE PHOSPHATE

REACTIONS (18)
  - Rectal haemorrhage [Unknown]
  - Intervertebral disc degeneration [Unknown]
  - Meralgia paraesthetica [Unknown]
  - Drug ineffective [Not Recovered/Not Resolved]
  - Feeling abnormal [Unknown]
  - Glaucoma [Unknown]
  - Headache [Unknown]
  - Oral disorder [Unknown]
  - Arthralgia [Unknown]
  - Tenderness [Unknown]
  - Eye disorder [Unknown]
  - Bone pain [Unknown]
  - Back pain [Unknown]
  - Thyroid neoplasm [Unknown]
  - Cataract [Unknown]
  - Vision blurred [Not Recovered/Not Resolved]
  - Pain in extremity [Unknown]
  - Osteoarthritis [Unknown]

NARRATIVE: CASE EVENT DATE: 201209
